FAERS Safety Report 15215385 (Version 1)
Quarter: 2018Q3

REPORT INFORMATION
  Report Type: Spontaneous
  Country: US (occurrence: US)
  Receive Date: 20180703
  Receipt Date: 20180703
  Transmission Date: 20181010
  Serious: Yes (Other)
  Sender: FDA-Public Use
  Company Number: None

PATIENT
  Age: 87 Year
  Sex: Male
  Weight: 59.85 kg

DRUGS (15)
  1. NINLARO [Suspect]
     Active Substance: IXAZOMIB CITRATE
     Indication: PLASMA CELL MYELOMA
     Dosage: ?          OTHER FREQUENCY:ONCE WEEKLY;?
     Route: 048
     Dates: start: 20180514, end: 20180702
  2. ONDANSETRON [Concomitant]
     Active Substance: ONDANSETRON
  3. DULOXETINE. [Concomitant]
     Active Substance: DULOXETINE
  4. COLESTIPOL [Concomitant]
     Active Substance: COLESTIPOL
  5. METFORMIN [Concomitant]
     Active Substance: METFORMIN HYDROCHLORIDE
  6. ASPIRIN. [Concomitant]
     Active Substance: ASPIRIN
  7. VITAMIN D [Concomitant]
     Active Substance: CHOLECALCIFEROL
  8. SENNA?DOCUSATE [Concomitant]
     Active Substance: DOCUSATE SODIUM\SENNOSIDES
  9. CALCIUM + D3 [Concomitant]
     Active Substance: CALCIUM\CHOLECALCIFEROL
  10. SIMVASTATIN. [Concomitant]
     Active Substance: SIMVASTATIN
  11. LOMOTIL [Concomitant]
     Active Substance: ATROPINE SULFATE\DIPHENOXYLATE HYDROCHLORIDE
  12. LISINOPRIL. [Concomitant]
     Active Substance: LISINOPRIL
  13. ACYCLOVIR. [Concomitant]
     Active Substance: ACYCLOVIR
  14. REVLIMID [Concomitant]
     Active Substance: LENALIDOMIDE
  15. DEXAMETHASONE. [Concomitant]
     Active Substance: DEXAMETHASONE

REACTIONS (3)
  - Diarrhoea [None]
  - Disease progression [None]
  - Fatigue [None]
